FAERS Safety Report 5343565-8 (Version None)
Quarter: 2007Q2

REPORT INFORMATION
  Report Type: 
  Country: None (occurrence: None)
  Receive Date: 20070416
  Receipt Date: 20070126
  Transmission Date: 20071010
  Serious: No
  Sender: FDA-Public Use
  Company Number: 2007SP000300

PATIENT
  Age: 74 Year
  Sex: Female

DRUGS (3)
  1. LUNESTA [Suspect]
     Indication: INSOMNIA
     Dosage: 3 MG; HS; ORAL
     Route: 048
     Dates: start: 20070101
  2. PREVACID [Concomitant]
  3. CALCIUM CHLORIDE [Concomitant]

REACTIONS (2)
  - DIZZINESS [None]
  - NERVOUSNESS [None]
